FAERS Safety Report 8211259-7 (Version None)
Quarter: 2012Q1

REPORT INFORMATION
  Report Type: 
  Country: None (occurrence: None)
  Receive Date: 20120229
  Receipt Date: 20110425
  Transmission Date: 20120608
  Serious: Yes (Other)
  Sender: FDA-Public Use
  Company Number: 327140

PATIENT
  Age: 70 Year
  Sex: Male

DRUGS (2)
  1. NOVOLIN R [Suspect]
     Indication: TYPE 2 DIABETES MELLITUS
     Dosage: SLIDING SCALE, QID, SUBCUTANEOUS
     Route: 058
  2. LEVEMIR [Suspect]
     Indication: TYPE 2 DIABETES MELLITUS
     Dosage: 110 U, QD AT BEDTIME, SUBCUTANEOUS
     Route: 058

REACTIONS (2)
  - WRONG DRUG ADMINISTERED [None]
  - HYPOGLYCAEMIA [None]
